FAERS Safety Report 13710226 (Version 10)
Quarter: 2018Q3

REPORT INFORMATION
  Report Type: Spontaneous
  Country: US (occurrence: US)
  Receive Date: 20170703
  Receipt Date: 20180921
  Transmission Date: 20181010
  Serious: Yes (Death, Hospitalization)
  Sender: FDA-Public Use
  Company Number: US-ACTELION-A-US2017-156023

PATIENT
  Age: 61 Year
  Sex: Male
  Weight: 77.98 kg

DRUGS (3)
  1. SILDENAFIL CITRATE. [Concomitant]
     Active Substance: SILDENAFIL CITRATE
  2. VELETRI [Suspect]
     Active Substance: EPOPROSTENOL
     Indication: PULMONARY HYPERTENSION
     Dosage: 26.5 NG/KG, PER MIN
     Route: 042
  3. COUMADIN [Concomitant]
     Active Substance: WARFARIN SODIUM

REACTIONS (7)
  - Substance abuse [Unknown]
  - Neoplasm malignant [Fatal]
  - Hospitalisation [Unknown]
  - Ascites [Unknown]
  - Back pain [Unknown]
  - Detoxification [Unknown]
  - Hypokalaemia [Unknown]
